FAERS Safety Report 18690426 (Version 1)
Quarter: 2021Q1

REPORT INFORMATION
  Report Type: Spontaneous
  Country: US (occurrence: US)
  Receive Date: 20210101
  Receipt Date: 20210101
  Transmission Date: 20210419
  Serious: No
  Sender: FDA-Public Use
  Company Number: US-RECORDATI RARE DISEASES-2103773

PATIENT
  Age: 24 Year
  Sex: Female

DRUGS (2)
  1. SIGNIFOR [Suspect]
     Active Substance: PASIREOTIDE DIASPARTATE
     Indication: NELSON^S SYNDROME
  2. SIGNIFOR [Suspect]
     Active Substance: PASIREOTIDE DIASPARTATE

REACTIONS (4)
  - Diarrhoea [Unknown]
  - Nausea [Unknown]
  - Palpitations [Unknown]
  - Product use in unapproved indication [Unknown]
